FAERS Safety Report 5509758-1 (Version None)
Quarter: 2007Q4

REPORT INFORMATION
  Report Type: 
  Country: None (occurrence: None)
  Receive Date: 20071107
  Receipt Date: 20071107
  Transmission Date: 20080405
  Serious: Yes (Hospitalization)
  Sender: FDA-Public Use
  Company Number: None

PATIENT
  Sex: Female
  Weight: 101 kg

DRUGS (6)
  1. CARBOPLATIN [Suspect]
     Dosage: 715 MG
  2. TAXOL [Suspect]
     Dosage: 343 MG
  3. COUMADIN [Concomitant]
  4. MAGNESIUM SULFATE [Concomitant]
  5. NONSTEROIDAL ANTI-INFLAMMATORY OTC NOS [Concomitant]
  6. PRILOSEC [Concomitant]

REACTIONS (11)
  - ABDOMINAL PAIN LOWER [None]
  - COLD SWEAT [None]
  - DIARRHOEA [None]
  - DIVERTICULITIS [None]
  - FAECES DISCOLOURED [None]
  - GASTRITIS [None]
  - HIATUS HERNIA [None]
  - INTESTINAL ISCHAEMIA [None]
  - LARGE INTESTINAL ULCER [None]
  - NAUSEA [None]
  - VOMITING [None]
